FAERS Safety Report 16128607 (Version 1)
Quarter: 2019Q1

REPORT INFORMATION
  Report Type: Report from Study
  Country: None (occurrence: US)
  Receive Date: 20190328
  Receipt Date: 20190328
  Transmission Date: 20190418
  Serious: Yes (Hospitalization)
  Sender: FDA-Public Use
  Company Number: US-ABBVIE-19K-163-2640957-00

PATIENT
  Age: 24 Year
  Sex: Female
  Weight: 44.04 kg

DRUGS (1)
  1. HUMIRA [Suspect]
     Active Substance: ADALIMUMAB
     Indication: RHEUMATOID ARTHRITIS
     Dosage: TOOK HUMIRA ON 4 NOV 2018, 19 NOV 2019, 2 DEC 2018, 17 DEC 2018, 30 DEC 2018, 14 JAN 2019
     Route: 058

REACTIONS (12)
  - Staphylococcal sepsis [Unknown]
  - Blood potassium decreased [Unknown]
  - Vascular device infection [Unknown]
  - Chest pain [Unknown]
  - Breast swelling [Unknown]
  - Hyperaesthesia [Unknown]
  - Immunodeficiency [Unknown]
  - Blood magnesium decreased [Unknown]
  - Breast pain [Unknown]
  - Erythema [Unknown]
  - Swelling [Unknown]
  - Injection site pain [Unknown]
